FAERS Safety Report 8876900 (Version 1)
Quarter: 2012Q4

REPORT INFORMATION
  Report Type: 
  Country: ES (occurrence: ES)
  Receive Date: 20121029
  Receipt Date: 20121029
  Transmission Date: 20130627
  Serious: Yes (Hospitalization, Other)
  Sender: FDA-Public Use
  Company Number: ES-ELI_LILLY_AND_COMPANY-ES201210005360

PATIENT
  Sex: Female

DRUGS (2)
  1. FORSTEO [Suspect]
     Dosage: UNK
  2. FORSTEO [Suspect]
     Dosage: UNK
     Dates: start: 201203

REACTIONS (3)
  - Biliary colic [Unknown]
  - Cholelithiasis [Unknown]
  - Off label use [Unknown]
